FAERS Safety Report 6874769 (Version 23)
Quarter: 2014Q3

REPORT INFORMATION
  Report Type: Spontaneous
  Country: US (occurrence: US)
  Receive Date: 20090107
  Receipt Date: 20140721
  Transmission Date: 20150326
  Serious: Yes (Other)
  Sender: FDA-Public Use
  Company Number: PHEH2009US00447

PATIENT
  Age: 59 Year
  Sex: Male

DRUGS (11)
  1. ZOMETA [Suspect]
     Active Substance: ZOLEDRONIC ACID
     Indication: OSTEOPOROSIS
     Dosage: 4 MG, QMO
     Route: 042
     Dates: end: 20021109
  2. ZOMETA [Suspect]
     Active Substance: ZOLEDRONIC ACID
     Indication: METASTASES TO PELVIS
  3. VICODIN [Concomitant]
     Active Substance: ACETAMINOPHEN\HYDROCODONE BITARTRATE
     Dosage: 1 DF, Q4H PRN
     Route: 048
  4. ZOMETA [Suspect]
     Active Substance: ZOLEDRONIC ACID
     Indication: BONE LOSS
  5. IBUPROFEN. [Concomitant]
     Active Substance: IBUPROFEN
     Dosage: 600 MG, Q6H
     Route: 048
  6. PEN-VEE-K [Concomitant]
     Dosage: 500 MG, QID
     Route: 048
  7. AROMASIN [Concomitant]
     Active Substance: EXEMESTANE
  8. OXYCODONE [Concomitant]
     Active Substance: OXYCODONE
  9. CHLORHEXIDINE [Concomitant]
     Active Substance: CHLORHEXIDINE
  10. PAXIL [Concomitant]
     Active Substance: PAROXETINE HYDROCHLORIDE
  11. PRILOSEC [Concomitant]
     Active Substance: OMEPRAZOLE MAGNESIUM

REACTIONS (125)
  - Facet joint syndrome [Unknown]
  - Atelectasis [Unknown]
  - Depression [Unknown]
  - Thyroid neoplasm [Unknown]
  - Exposed bone in jaw [Unknown]
  - Fibrosis [Unknown]
  - Pain in jaw [Unknown]
  - Jaw fracture [Unknown]
  - Arthritis [Unknown]
  - Osteoarthritis [Unknown]
  - Deafness neurosensory [Unknown]
  - Gastroduodenitis [Unknown]
  - Insomnia [Unknown]
  - Lymphoedema [Unknown]
  - Hypoaesthesia [Unknown]
  - Musculoskeletal pain [Unknown]
  - Musculoskeletal stiffness [Unknown]
  - Lower limb fracture [Unknown]
  - Intervertebral disc degeneration [Unknown]
  - Bone lesion [Unknown]
  - Myalgia [Unknown]
  - Spinal osteoarthritis [Unknown]
  - Helicobacter infection [Unknown]
  - Haematemesis [Unknown]
  - Upper limb fracture [Unknown]
  - Device breakage [Unknown]
  - Abdominal distension [Unknown]
  - Haematochezia [Unknown]
  - Metastases to spine [Unknown]
  - Gastritis [Unknown]
  - Gastrointestinal haemorrhage [Unknown]
  - Osteitis deformans [Unknown]
  - Humerus fracture [Unknown]
  - Oral fibroma [Unknown]
  - Vertebral lesion [Unknown]
  - Tuberculosis [Unknown]
  - Erythema [Unknown]
  - Ulcer [Unknown]
  - Hyperkeratosis [Unknown]
  - Fall [Unknown]
  - Vitamin D deficiency [Unknown]
  - Hypotension [Unknown]
  - Barrett^s oesophagus [Unknown]
  - Erectile dysfunction [Unknown]
  - Rib fracture [Unknown]
  - Exostosis [Unknown]
  - Neck pain [Recovering/Resolving]
  - Pain [Unknown]
  - Discomfort [Unknown]
  - Purulent discharge [Unknown]
  - Actinomycosis [Unknown]
  - Cataract [Unknown]
  - Hypomagnesaemia [Unknown]
  - Rectal haemorrhage [Unknown]
  - Fatigue [Unknown]
  - Vision blurred [Unknown]
  - Bone swelling [Unknown]
  - Large intestine polyp [Unknown]
  - Neuropathy peripheral [Unknown]
  - Intervertebral disc protrusion [Unknown]
  - Back pain [Unknown]
  - Osteosclerosis [Unknown]
  - Hypoaesthesia oral [Unknown]
  - Hiatus hernia [Unknown]
  - Compression fracture [Unknown]
  - Lymphadenopathy [Unknown]
  - Oral papilloma [Unknown]
  - Gastrooesophageal reflux disease [Unknown]
  - Periodontitis [Unknown]
  - Pneumonia streptococcal [Unknown]
  - Dehydration [Unknown]
  - Hyperlipidaemia [Unknown]
  - Anaemia [Unknown]
  - Dysthymic disorder [Unknown]
  - Colon adenoma [Unknown]
  - Inflammatory bowel disease [Unknown]
  - Pulmonary mass [Unknown]
  - Exostosis of jaw [Unknown]
  - Peripheral swelling [Unknown]
  - Spinal fracture [Unknown]
  - Arthralgia [Unknown]
  - Tooth fracture [Unknown]
  - Purulence [Unknown]
  - Vascular calcification [Unknown]
  - Glaucoma [Unknown]
  - Osteonecrosis of jaw [Unknown]
  - Osteomyelitis [Unknown]
  - Bone marrow oedema [Unknown]
  - Hand fracture [Unknown]
  - Urticaria [Unknown]
  - Productive cough [Unknown]
  - Colitis ischaemic [Unknown]
  - Seborrhoeic keratosis [Unknown]
  - Intervertebral disc disorder [Unknown]
  - Muscular weakness [Unknown]
  - Aortic calcification [Unknown]
  - Facial bones fracture [Unknown]
  - Osteitis [Unknown]
  - Myopia [Unknown]
  - Presbyopia [Unknown]
  - Anal haemorrhage [Unknown]
  - Lumbar vertebral fracture [Unknown]
  - Toothache [Unknown]
  - Carotid arteriosclerosis [Unknown]
  - Vertebral foraminal stenosis [Unknown]
  - Sinus tachycardia [Unknown]
  - Major depression [Unknown]
  - Nicotine dependence [Unknown]
  - Gynaecomastia [Unknown]
  - Postoperative wound infection [Unknown]
  - Metastases to bone [Unknown]
  - Bone pain [Unknown]
  - Swelling face [Unknown]
  - Cellulitis [Unknown]
  - Diverticulum intestinal [Unknown]
  - Tonsillar disorder [Unknown]
  - Astigmatism [Unknown]
  - Pupils unequal [Unknown]
  - Large intestine benign neoplasm [Unknown]
  - Vascular insufficiency [Unknown]
  - Dizziness [Unknown]
  - Injury [Unknown]
  - Loose tooth [Unknown]
  - Tooth loss [Unknown]
  - Constipation [Unknown]

NARRATIVE: CASE EVENT DATE: 200409
